FAERS Safety Report 7251680 (Version 2)
Quarter: 2021Q2

REPORT INFORMATION
  Report Type: Spontaneous
  Country: CH (occurrence: CH)
  Receive Date: 20100121
  Receipt Date: 20210528
  Transmission Date: 20210717
  Serious: Yes (Hospitalization, Other)
  Sender: FDA-Public Use
  Company Number: CH-JNJFOC-20100104197

PATIENT
  Age: 64 Year
  Sex: Male

DRUGS (3)
  1. DUROGESIC MATRIX [Suspect]
     Active Substance: FENTANYL
     Route: 062
  2. DUROGESIC MATRIX [Suspect]
     Active Substance: FENTANYL
     Indication: PAIN
     Route: 065
     Dates: start: 200504
  3. PHENPROCOUMON [Suspect]
     Active Substance: PHENPROCOUMON
     Indication: PRODUCT USED FOR UNKNOWN INDICATION
     Route: 065

REACTIONS (1)
  - Secondary adrenocortical insufficiency [Not Recovered/Not Resolved]
